FAERS Safety Report 8610299-3 (Version None)
Quarter: 2012Q3

REPORT INFORMATION
  Report Type: 
  Country: None (occurrence: None)
  Receive Date: 20120822
  Receipt Date: 20120816
  Transmission Date: 20120928
  Serious: Yes (Other)
  Sender: FDA-Public Use
  Company Number: PHEH2012US016187

PATIENT
  Sex: Male

DRUGS (1)
  1. FOCALIN [Suspect]
     Dosage: 10 MG, UNK

REACTIONS (2)
  - VISUAL IMPAIRMENT [None]
  - INTERVERTEBRAL DISC DEGENERATION [None]
